FAERS Safety Report 7791688-6 (Version None)
Quarter: 2011Q4

REPORT INFORMATION
  Report Type: 
  Country: None (occurrence: None)
  Receive Date: 20111003
  Receipt Date: 20110926
  Transmission Date: 20120403
  Serious: Yes (Death, Hospitalization, Other)
  Sender: FDA-Public Use
  Company Number: JP-JNJFOC-20090700844

PATIENT
  Sex: Female
  Weight: 66 kg

DRUGS (2)
  1. DOXORUBICIN HCL [Suspect]
     Indication: OVARIAN CANCER RECURRENT
     Route: 042
     Dates: start: 20090519, end: 20090519
  2. ZOMETA [Concomitant]
     Indication: PRODUCT USED FOR UNKNOWN INDICATION
     Route: 042
     Dates: start: 20090514

REACTIONS (6)
  - MULTI-ORGAN FAILURE [None]
  - GRAND MAL CONVULSION [None]
  - SMALL INTESTINAL PERFORATION [None]
  - OVARIAN CANCER [None]
  - RADIATION SKIN INJURY [None]
  - PNEUMOTHORAX [None]
